FAERS Safety Report 6811067-5 (Version None)
Quarter: 2010Q2

REPORT INFORMATION
  Report Type: 
  Country: None (occurrence: None)
  Receive Date: 20100630
  Receipt Date: 20090112
  Transmission Date: 20101027
  Serious: No
  Sender: FDA-Public Use
  Company Number: US-PFIZER INC-2009154437

PATIENT
  Sex: Female

DRUGS (6)
  1. ESTRING [Suspect]
     Indication: MENOPAUSAL SYMPTOMS
  2. ARFORMOTEROL INHALED [Concomitant]
  3. PROCATEROL HYDROCHLORIDE [Concomitant]
  4. PREDNISONE [Concomitant]
  5. PROTONIX [Concomitant]
  6. ALL OTHER THERAPEUTIC PRODUCTS [Concomitant]

REACTIONS (2)
  - FLUSHING [None]
  - VULVOVAGINAL DRYNESS [None]
